FAERS Safety Report 4368232-9 (Version None)
Quarter: 2004Q2

REPORT INFORMATION
  Report Type: 
  Country: None (occurrence: None)
  Receive Date: 20040527
  Receipt Date: 20040517
  Transmission Date: 20050107
  Serious: Yes (Hospitalization)
  Sender: FDA-Public Use
  Company Number: 2004-116108-NL

PATIENT
  Age: 67 Year
  Sex: Male

DRUGS (4)
  1. MIRTAZAPINE [Suspect]
     Dosage: 30 MG/45 MG
     Dates: start: 20040317, end: 20040402
  2. MIRTAZAPINE [Suspect]
     Dosage: 30 MG/45 MG
     Dates: start: 20040402
  3. GAVISCON [Concomitant]
  4. DICLOFENAC [Concomitant]

REACTIONS (2)
  - ANXIETY [None]
  - OBSESSIVE-COMPULSIVE DISORDER [None]
